FAERS Safety Report 25900470 (Version 1)
Quarter: 2025Q4

REPORT INFORMATION
  Report Type: Spontaneous
  Country: GB (occurrence: GB)
  Receive Date: 20251009
  Receipt Date: 20251009
  Transmission Date: 20260119
  Serious: Yes (Hospitalization)
  Sender: MYLAN
  Company Number: GB-MYLANLABS-2025M1085401

PATIENT
  Age: 60 Year
  Sex: Female

DRUGS (16)
  1. CLOZAPINE [Suspect]
     Active Substance: CLOZAPINE
     Indication: Schizophrenia
     Dosage: 375 MILLIGRAM, QD
  2. CLOZAPINE [Suspect]
     Active Substance: CLOZAPINE
     Dosage: 375 MILLIGRAM, QD
  3. CLOZAPINE [Suspect]
     Active Substance: CLOZAPINE
     Dosage: 375 MILLIGRAM, QD
     Route: 065
  4. CLOZAPINE [Suspect]
     Active Substance: CLOZAPINE
     Dosage: 375 MILLIGRAM, QD
     Route: 065
  5. CLOZAPINE [Suspect]
     Active Substance: CLOZAPINE
     Dosage: 300 MILLIGRAM, QD
  6. CLOZAPINE [Suspect]
     Active Substance: CLOZAPINE
     Dosage: 300 MILLIGRAM, QD
  7. CLOZAPINE [Suspect]
     Active Substance: CLOZAPINE
     Dosage: 300 MILLIGRAM, QD
     Route: 065
  8. CLOZAPINE [Suspect]
     Active Substance: CLOZAPINE
     Dosage: 300 MILLIGRAM, QD
     Route: 065
  9. CLOZAPINE [Suspect]
     Active Substance: CLOZAPINE
     Dosage: UNK, DOSE WAS GRADUALLY REDUCED WITH REGULAR MONITORING
  10. CLOZAPINE [Suspect]
     Active Substance: CLOZAPINE
     Dosage: UNK, DOSE WAS GRADUALLY REDUCED WITH REGULAR MONITORING
     Route: 065
  11. CLOZAPINE [Suspect]
     Active Substance: CLOZAPINE
     Dosage: UNK, DOSE WAS GRADUALLY REDUCED WITH REGULAR MONITORING
  12. CLOZAPINE [Suspect]
     Active Substance: CLOZAPINE
     Dosage: UNK, DOSE WAS GRADUALLY REDUCED WITH REGULAR MONITORING
     Route: 065
  13. LAMOTRIGINE [Concomitant]
     Active Substance: LAMOTRIGINE
     Indication: Seizure prophylaxis
     Dosage: UNK
  14. LAMOTRIGINE [Concomitant]
     Active Substance: LAMOTRIGINE
     Dosage: UNK
     Route: 065
  15. LAMOTRIGINE [Concomitant]
     Active Substance: LAMOTRIGINE
     Dosage: UNK
     Route: 065
  16. LAMOTRIGINE [Concomitant]
     Active Substance: LAMOTRIGINE
     Dosage: UNK

REACTIONS (5)
  - Product dose omission issue [Recovered/Resolved]
  - Toxicity to various agents [Recovered/Resolved]
  - Rebound effect [Recovered/Resolved]
  - Psychotic disorder [Recovered/Resolved]
  - Pseudostroke [Recovered/Resolved]
